FAERS Safety Report 5559601-X (Version None)
Quarter: 2007Q4

REPORT INFORMATION
  Report Type: 
  Country: None (occurrence: None)
  Receive Date: 20071214
  Receipt Date: 20071003
  Transmission Date: 20080405
  Serious: No
  Sender: FDA-Public Use
  Company Number: US-ABBOTT-07P-163-0419932-00

PATIENT
  Sex: Male
  Weight: 81.72 kg

DRUGS (4)
  1. HUMIRA [Suspect]
     Indication: RHEUMATOID ARTHRITIS
     Route: 058
     Dates: start: 20040101, end: 20070501
  2. HUMIRA [Suspect]
     Route: 058
     Dates: start: 20070601, end: 20070906
  3. HUMIRA [Suspect]
     Route: 058
     Dates: start: 20071002
  4. INSULIN LISPRO [Concomitant]
     Indication: DIABETES MELLITUS
     Route: 058

REACTIONS (3)
  - EAR INFECTION [None]
  - TYMPANIC MEMBRANE PERFORATION [None]
  - UPPER RESPIRATORY TRACT INFECTION [None]
